FAERS Safety Report 7554287-7 (Version None)
Quarter: 2011Q2

REPORT INFORMATION
  Report Type: 
  Country: None (occurrence: None)
  Receive Date: 20110617
  Receipt Date: 20110610
  Transmission Date: 20111010
  Serious: Yes (Life-Threatening, Other)
  Sender: FDA-Public Use
  Company Number: US-ELI_LILLY_AND_COMPANY-US201106003059

PATIENT
  Sex: Female

DRUGS (16)
  1. NADOLOL [Concomitant]
     Dosage: UNK
     Dates: start: 20100108
  2. CREON [Concomitant]
     Dosage: UNK
     Dates: start: 20091222
  3. NYSTATIN [Concomitant]
     Dosage: UNK
     Dates: start: 20100111
  4. SALIVA SUBSTITUTE [Concomitant]
     Dosage: UNK
     Dates: start: 20100108
  5. OMEPRAZOLE [Concomitant]
     Dosage: UNK
     Dates: start: 20091129, end: 20100120
  6. OTHER PHARMA COMPANY INV DRUG [Suspect]
     Indication: PANCREATIC CARCINOMA METASTATIC
     Dosage: 48 MG/KG, SINGLE
     Dates: start: 20100115, end: 20100115
  7. ZOFRAN [Concomitant]
     Dosage: UNK
     Dates: start: 20100108
  8. VITAMIN K TAB [Concomitant]
     Dosage: UNK
     Dates: start: 20100108, end: 20100122
  9. OTHER PHARMA COMPANY INV DRUG [Suspect]
     Dosage: 24 MG/KG, EVERY 3 WEEKS
     Route: 042
     Dates: start: 20100212
  10. XALATAN [Concomitant]
     Dosage: UNK
     Dates: start: 20100111
  11. GEMCITABINE HYDROCHLORIDE [Suspect]
     Indication: PANCREATIC CARCINOMA METASTATIC
     Dosage: 1000 MG/M2, EVERY 25 DAYS
     Route: 042
     Dates: start: 20100115
  12. FLUCONAZOLE [Concomitant]
     Dosage: UNK
     Dates: start: 20100115
  13. REHYDRON [Concomitant]
     Dosage: UNK
     Dates: start: 20100120
  14. OXYCODONE HCL [Concomitant]
     Dosage: UNK
     Dates: start: 20091208, end: 20100120
  15. COLACE [Concomitant]
     Dosage: UNK
     Dates: start: 20091129
  16. COMPAZINE [Concomitant]
     Dosage: UNK
     Dates: start: 20091222

REACTIONS (1)
  - PULMONARY EMBOLISM [None]
